FAERS Safety Report 11971399 (Version 1)
Quarter: 2016Q1

REPORT INFORMATION
  Report Type: Spontaneous
  Country: FR (occurrence: FR)
  Receive Date: 20160128
  Receipt Date: 20160128
  Transmission Date: 20160526
  Serious: Yes (Hospitalization, Other)
  Sender: FDA-Public Use
  Company Number: FR-BAXTER-2016BAX003102

PATIENT
  Age: 72 Year
  Sex: Male

DRUGS (2)
  1. JEVTANA [Suspect]
     Active Substance: CABAZITAXEL
     Indication: PROSTATE CANCER METASTATIC
     Route: 042
     Dates: start: 201507, end: 20151203
  2. ENDOXAN 50 MG, COMPRIM? ENROB? [Suspect]
     Active Substance: CYCLOPHOSPHAMIDE
     Indication: PROSTATE CANCER METASTATIC
     Dosage: ONE TABLET
     Route: 048
     Dates: start: 20151210, end: 20151227

REACTIONS (6)
  - Uraemic encephalopathy [Unknown]
  - Device related sepsis [Recovering/Resolving]
  - Staphylococcal sepsis [Recovering/Resolving]
  - Renal impairment [Unknown]
  - Septic shock [Recovering/Resolving]
  - Enterococcal sepsis [Recovering/Resolving]

NARRATIVE: CASE EVENT DATE: 20151225
